FAERS Safety Report 17683772 (Version 4)
Quarter: 2022Q1

REPORT INFORMATION
  Report Type: Spontaneous
  Country: FI (occurrence: FI)
  Receive Date: 20200420
  Receipt Date: 20220318
  Transmission Date: 20220424
  Serious: Yes (Other)
  Sender: FDA-Public Use
  Company Number: None

PATIENT
  Age: 62 Year
  Sex: Female

DRUGS (13)
  1. EPIRUBICIN [Suspect]
     Active Substance: EPIRUBICIN
     Indication: Breast cancer
     Dosage: UNK
     Route: 065
     Dates: start: 2018
  2. EPIRUBICIN [Suspect]
     Active Substance: EPIRUBICIN
     Indication: Invasive ductal breast carcinoma
  3. DOCETAXEL [Suspect]
     Active Substance: DOCETAXEL
     Indication: Breast cancer
     Dosage: UNK, CYCLIC (3 CYCLES)
     Route: 065
     Dates: start: 2018
  4. DOCETAXEL [Suspect]
     Active Substance: DOCETAXEL
     Indication: Invasive ductal breast carcinoma
  5. FILGRASTIM [Suspect]
     Active Substance: FILGRASTIM
     Indication: Breast cancer
     Dosage: UNK, CYCLIC (3 CYCLES)
     Route: 065
     Dates: start: 2018
  6. PEGFILGRASTIM [Suspect]
     Active Substance: PEGFILGRASTIM
     Indication: Breast cancer
     Dosage: UNK, CYCLIC (3 CYCLES)
     Route: 065
     Dates: start: 2018
  7. FLUOROURACIL [Suspect]
     Active Substance: FLUOROURACIL
     Indication: Breast cancer
     Dosage: UNK
     Route: 065
     Dates: start: 2018
  8. FLUOROURACIL [Suspect]
     Active Substance: FLUOROURACIL
     Indication: Invasive ductal breast carcinoma
  9. TRASTUZUMAB [Concomitant]
     Active Substance: TRASTUZUMAB
     Indication: Breast cancer
     Dosage: UNK, CYCLIC (3 CYCLES)
     Route: 065
     Dates: start: 2018
  10. TRASTUZUMAB [Concomitant]
     Active Substance: TRASTUZUMAB
     Indication: Invasive ductal breast carcinoma
  11. PERTUZUMAB [Concomitant]
     Active Substance: PERTUZUMAB
     Indication: Breast cancer
     Dosage: UNK, CYCLIC (3 CYCLES)
     Route: 065
     Dates: start: 2018
  12. PERTUZUMAB [Concomitant]
     Active Substance: PERTUZUMAB
     Indication: Invasive ductal breast carcinoma
  13. CYCLOPHOSPHAMIDE [Concomitant]
     Active Substance: CYCLOPHOSPHAMIDE
     Indication: Invasive ductal breast carcinoma
     Dosage: UNK
     Route: 065
     Dates: start: 2018

REACTIONS (1)
  - Aortitis [Recovered/Resolved]

NARRATIVE: CASE EVENT DATE: 20180101
